FAERS Safety Report 20553987 (Version 3)
Quarter: 2022Q2

REPORT INFORMATION
  Report Type: Other
  Country: LB (occurrence: None)
  Receive Date: 20220304
  Receipt Date: 20220405
  Transmission Date: 20220721
  Serious: Yes (Death, Hospitalization, Other)
  Sender: FDA-Public Use
  Company Number: LB-ROCHE-3032903

PATIENT
  Age: 72 Year
  Sex: Female

DRUGS (1)
  1. TECENTRIQ [Suspect]
     Active Substance: ATEZOLIZUMAB
     Indication: Non-small cell lung cancer
     Route: 041
     Dates: start: 20220218

REACTIONS (8)
  - Dyspnoea [Recovering/Resolving]
  - COVID-19 [Unknown]
  - Pyrexia [Unknown]
  - Decreased appetite [Unknown]
  - Pleural effusion [Unknown]
  - Fatigue [Unknown]
  - Gait inability [Unknown]
  - Death [Fatal]

NARRATIVE: CASE EVENT DATE: 20220219
